FAERS Safety Report 26005724 (Version 1)
Quarter: 2025Q4

REPORT INFORMATION
  Report Type: Spontaneous
  Country: EU (occurrence: EU)
  Receive Date: 20251106
  Receipt Date: 20251106
  Transmission Date: 20260117
  Serious: Yes (Other)
  Sender: TEVA
  Company Number: None

PATIENT
  Age: 65 Year
  Sex: Male
  Weight: 55.2 kg

DRUGS (37)
  1. GABAPENTIN [Interacting]
     Active Substance: GABAPENTIN
     Indication: Pain
     Route: 048
     Dates: start: 20250818, end: 20250905
  2. GABAPENTIN [Interacting]
     Active Substance: GABAPENTIN
     Indication: Pain
     Route: 048
     Dates: start: 20250709, end: 20250806
  3. GABAPENTIN [Interacting]
     Active Substance: GABAPENTIN
     Indication: Pain
     Route: 048
     Dates: start: 20250905, end: 20250916
  4. GABAPENTIN [Interacting]
     Active Substance: GABAPENTIN
     Indication: Pain
     Route: 048
     Dates: start: 20250916, end: 20251004
  5. GABAPENTIN [Interacting]
     Active Substance: GABAPENTIN
     Indication: Pain
     Route: 048
     Dates: start: 20251004, end: 20251010
  6. GABAPENTIN [Interacting]
     Active Substance: GABAPENTIN
     Indication: Pain
     Route: 048
     Dates: start: 20250516, end: 20250709
  7. GABAPENTIN [Interacting]
     Active Substance: GABAPENTIN
     Indication: Pain
     Route: 048
     Dates: start: 20250806, end: 20250818
  8. AMITRIPTYLINE HYDROCHLORIDE [Interacting]
     Active Substance: AMITRIPTYLINE HYDROCHLORIDE
     Indication: Pain
     Route: 048
     Dates: start: 20250901, end: 20250922
  9. AMITRIPTYLINE HYDROCHLORIDE [Interacting]
     Active Substance: AMITRIPTYLINE HYDROCHLORIDE
     Indication: Pain
     Route: 048
     Dates: start: 20250808, end: 20250813
  10. AMITRIPTYLINE HYDROCHLORIDE [Interacting]
     Active Substance: AMITRIPTYLINE HYDROCHLORIDE
     Indication: Pain
     Route: 048
     Dates: start: 20250610, end: 20250808
  11. AMITRIPTYLINE HYDROCHLORIDE [Interacting]
     Active Substance: AMITRIPTYLINE HYDROCHLORIDE
     Indication: Pain
     Route: 048
     Dates: start: 20250813, end: 20250901
  12. AMITRIPTYLINE HYDROCHLORIDE [Interacting]
     Active Substance: AMITRIPTYLINE HYDROCHLORIDE
     Indication: Pain
     Route: 048
     Dates: start: 20250927
  13. AMITRIPTYLINE HYDROCHLORIDE [Interacting]
     Active Substance: AMITRIPTYLINE HYDROCHLORIDE
     Indication: Pain
     Route: 048
     Dates: start: 20250922, end: 20250927
  14. NALOXEGOL OXALATE [Concomitant]
     Active Substance: NALOXEGOL OXALATE
     Indication: Prophylaxis
     Route: 048
     Dates: start: 20250623
  15. NEFOPAM HYDROCHLORIDE [Interacting]
     Active Substance: NEFOPAM HYDROCHLORIDE
     Indication: Pain
     Route: 048
     Dates: start: 20250603
  16. NICOTINE [Concomitant]
     Active Substance: NICOTINE
     Indication: Nicotine dependence
     Route: 062
     Dates: start: 20250502, end: 20250602
  17. NICOTINE [Concomitant]
     Active Substance: NICOTINE
     Indication: Nicotine dependence
     Route: 062
     Dates: start: 20250602
  18. NICOTINE [Concomitant]
     Active Substance: NICOTINE
     Indication: Nicotine dependence
     Route: 062
     Dates: start: 20250422, end: 20250502
  19. ALFUZOSIN HYDROCHLORIDE [Concomitant]
     Active Substance: ALFUZOSIN HYDROCHLORIDE
     Indication: Peripheral arterial occlusive disease
     Route: 048
     Dates: start: 20250421
  20. OXAZEPAM [Interacting]
     Active Substance: OXAZEPAM
     Indication: Anxiety
     Route: 048
     Dates: start: 20250821
  21. OXAZEPAM [Interacting]
     Active Substance: OXAZEPAM
     Indication: Anxiety
     Route: 048
     Dates: start: 20250605, end: 20250812
  22. OXAZEPAM [Interacting]
     Active Substance: OXAZEPAM
     Indication: Anxiety
     Route: 048
     Dates: start: 20250812, end: 20250821
  23. DULOXETINE [Interacting]
     Active Substance: DULOXETINE
     Indication: Pain
     Dosage: DULOXETINE HYDROCHLORIDE
     Route: 048
     Dates: start: 20250821, end: 20250917
  24. DULOXETINE [Interacting]
     Active Substance: DULOXETINE
     Indication: Pain
     Route: 048
     Dates: start: 20250917
  25. ACETAMINOPHEN [Concomitant]
     Active Substance: ACETAMINOPHEN
     Indication: Pain
     Dosage: TIME INTERVAL: AS NECESSARY
     Route: 048
  26. ATORVASTATIN [Concomitant]
     Active Substance: ATORVASTATIN
     Indication: Dyslipidaemia
     Route: 048
  27. KARDEGIC [Concomitant]
     Active Substance: ASPIRIN DL-LYSINE
     Indication: Peripheral arterial occlusive disease
     Route: 048
  28. MELATONIN [Concomitant]
     Active Substance: MELATONIN
     Indication: Insomnia
     Route: 048
     Dates: start: 20250421
  29. OXYCODONE [Interacting]
     Active Substance: OXYCODONE
     Indication: Pain
     Route: 048
     Dates: start: 20250516, end: 20250603
  30. OXYCODONE [Interacting]
     Active Substance: OXYCODONE
     Indication: Pain
     Route: 048
     Dates: start: 20250710, end: 20250813
  31. OXYCODONE [Interacting]
     Active Substance: OXYCODONE
     Indication: Pain
     Route: 048
     Dates: start: 20250813, end: 20250818
  32. OXYCODONE [Interacting]
     Active Substance: OXYCODONE
     Indication: Pain
     Route: 048
     Dates: start: 20250818, end: 20250919
  33. OXYCODONE [Interacting]
     Active Substance: OXYCODONE
     Indication: Pain
     Route: 048
     Dates: start: 20251002
  34. OXYCODONE [Interacting]
     Active Substance: OXYCODONE
     Indication: Pain
     Dosage: VARIABLE
     Route: 042
     Dates: start: 20250603, end: 20250709
  35. OXYCODONE [Interacting]
     Active Substance: OXYCODONE
     Indication: Pain
     Route: 048
     Dates: start: 20250919, end: 20251002
  36. LANSOPRAZOLE [Concomitant]
     Active Substance: LANSOPRAZOLE
     Indication: Prophylaxis
     Route: 048
     Dates: start: 20250421
  37. INNOHEP [Concomitant]
     Active Substance: TINZAPARIN SODIUM
     Indication: Product used for unknown indication
     Dosage: ANTI-XA/0.5 ML
     Route: 058
     Dates: start: 20250317, end: 20251013

REACTIONS (5)
  - Confusional state [Recovered/Resolved]
  - Disorientation [Recovered/Resolved]
  - Hallucination [Recovered/Resolved]
  - Mood swings [Not Recovered/Not Resolved]
  - Drug interaction [Not Recovered/Not Resolved]

NARRATIVE: CASE EVENT DATE: 20251010
